FAERS Safety Report 6510768-6 (Version None)
Quarter: 2009Q4

REPORT INFORMATION
  Report Type: 
  Country: None (occurrence: None)
  Receive Date: 20091222
  Receipt Date: 20091211
  Transmission Date: 20100525
  Serious: Yes (Life-Threatening, Hospitalization)
  Sender: FDA-Public Use
  Company Number: CA-BAXTER-2009BH017091

PATIENT
  Age: 71 Year
  Sex: Male
  Weight: 91 kg

DRUGS (4)
  1. BLINDED THERAPY IMMUNE GLOBULIN INTRAVENOUS (HUMAN), 10% (IGIV, 10%) [Suspect]
     Indication: MULTIFOCAL MOTOR NEUROPATHY
     Route: 042
     Dates: start: 20091030, end: 20091030
  2. BLINDED THERAPY [Suspect]
     Route: 042
     Dates: start: 20090313, end: 20091029
  3. ASPIRIN [Concomitant]
     Indication: INSOMNIA
     Route: 048
     Dates: start: 20080101
  4. SUDAFED 12 HOUR [Concomitant]
     Indication: UPPER RESPIRATORY TRACT INFECTION
     Route: 048
     Dates: start: 20090806, end: 20090807

REACTIONS (1)
  - PULMONARY EMBOLISM [None]
